FAERS Safety Report 9442375 (Version 1)
Quarter: 2013Q3

REPORT INFORMATION
  Report Type: Spontaneous
  Country: US (occurrence: US)
  Receive Date: 20130806
  Receipt Date: 20130806
  Transmission Date: 20140515
  Serious: No
  Sender: FDA-Public Use
  Company Number: US-GLAXOSMITHKLINE-A1014029A

PATIENT
  Age: 61 Year
  Sex: Female

DRUGS (5)
  1. ADVAIR [Suspect]
     Indication: ASTHMA
     Dosage: 2PUFF TWICE PER DAY
     Route: 055
     Dates: start: 1998
  2. FLUTICASONE [Concomitant]
  3. ALLEGRA [Concomitant]
  4. SINGULAIR [Concomitant]
  5. ALBUTEROL [Concomitant]

REACTIONS (10)
  - Cough [Unknown]
  - Throat irritation [Unknown]
  - Respiratory tract irritation [Unknown]
  - Malaise [Unknown]
  - Exercise tolerance decreased [Unknown]
  - Dysphonia [Unknown]
  - Medication residue present [Unknown]
  - Drug ineffective [Unknown]
  - Product quality issue [Unknown]
  - Drug administration error [Unknown]
